FAERS Safety Report 13317774 (Version 3)
Quarter: 2017Q3

REPORT INFORMATION
  Report Type: Spontaneous
  Country: US (occurrence: US)
  Receive Date: 20170310
  Receipt Date: 20170705
  Transmission Date: 20171127
  Serious: No
  Sender: FDA-Public Use
  Company Number: US-PFIZER INC-2017097660

PATIENT
  Age: 66 Year
  Sex: Female

DRUGS (6)
  1. FEMARA [Concomitant]
     Active Substance: LETROZOLE
     Dosage: UNK
  2. IBRANCE [Suspect]
     Active Substance: PALBOCICLIB
     Dosage: 100 MG, CYCLIC (ONCE A DAY FOR 21 DAYS OUT OF A 28 DAY CYCLE)
     Route: 048
  3. VITAMIN D3 [Concomitant]
     Active Substance: CHOLECALCIFEROL
     Dosage: UNK
  4. OMEGA-3 ACIDS [Concomitant]
     Active Substance: OMEGA-3 FATTY ACIDS
     Dosage: UNK
  5. IBUPROFEN. [Concomitant]
     Active Substance: IBUPROFEN
     Dosage: UNK
  6. IBRANCE [Suspect]
     Active Substance: PALBOCICLIB
     Indication: BREAST CANCER FEMALE
     Dosage: 125 MG, CYCLIC (EVERY DAY FOR 3 WEEKS ON, THEN 1 WEEK OFF)
     Route: 048

REACTIONS (4)
  - Joint stiffness [Unknown]
  - Nausea [Unknown]
  - Back pain [Unknown]
  - Arthralgia [Unknown]
